FAERS Safety Report 9343370 (Version 1)
Quarter: 2013Q2

REPORT INFORMATION
  Report Type: Spontaneous
  Country: BR (occurrence: BR)
  Receive Date: 20130612
  Receipt Date: 20130612
  Transmission Date: 20140414
  Serious: Yes (Other)
  Sender: FDA-Public Use
  Company Number: BR-AMGEN-BRACT2011019769

PATIENT
  Age: 74 Year
  Sex: Female
  Weight: 50 kg

DRUGS (9)
  1. ENBREL [Suspect]
     Indication: RHEUMATOID ARTHRITIS
     Dosage: 25 MG, WEEKLY
     Route: 058
     Dates: start: 200808
  2. ENBREL [Suspect]
     Dosage: 25 MG, 2X/WEEK
     Route: 058
  3. ENBREL [Suspect]
     Dosage: 25 MG, WEEKLY
     Route: 058
     Dates: end: 201305
  4. CALCIUM [Concomitant]
     Indication: PRODUCT USED FOR UNKNOWN INDICATION
     Dosage: UNK
     Dates: start: 2001
  5. B COMPLEX                          /00212701/ [Concomitant]
     Indication: PRODUCT USED FOR UNKNOWN INDICATION
     Dosage: UNK
     Dates: start: 2001
  6. OMEGA 3                            /01334101/ [Concomitant]
     Dosage: UNK
     Dates: start: 2001
  7. VITAMIN C                          /00008001/ [Concomitant]
     Dosage: UNK
  8. ZINC [Concomitant]
     Dosage: UNK
  9. COZAAR [Concomitant]
     Indication: HYPERTENSION
     Dosage: UNK

REACTIONS (9)
  - Hypersensitivity [Not Recovered/Not Resolved]
  - Nerve injury [Unknown]
  - Erythema [Unknown]
  - Pruritus [Unknown]
  - Rheumatoid arthritis [Not Recovered/Not Resolved]
  - Joint swelling [Not Recovered/Not Resolved]
  - Arthralgia [Unknown]
  - Herpes zoster [Not Recovered/Not Resolved]
  - Drug ineffective [Unknown]
